FAERS Safety Report 5025410-3 (Version None)
Quarter: 2006Q2

REPORT INFORMATION
  Report Type: 
  Country: None (occurrence: None)
  Receive Date: 20060608
  Receipt Date: 20060524
  Transmission Date: 20061013
  Serious: Yes (Death)
  Sender: FDA-Public Use
  Company Number: 2006S1004757

PATIENT
  Age: 48 Year
  Sex: Male

DRUGS (2)
  1. CLOZAPINE [Suspect]
     Dosage: 50 MG;HS;ORAL
     Route: 048
     Dates: start: 20060324
  2. CLOZAPINE [Suspect]
     Dosage: 200 MG;BID;ORAL
     Route: 048
     Dates: start: 20060324

REACTIONS (1)
  - RESPIRATORY FAILURE [None]
